FAERS Safety Report 12519930 (Version 4)
Quarter: 2016Q3

REPORT INFORMATION
  Report Type: Report from Study
  Country: US (occurrence: US)
  Receive Date: 20160701
  Receipt Date: 20160825
  Transmission Date: 20161109
  Serious: Yes (Hospitalization)
  Sender: FDA-Public Use
  Company Number: PHEH2016US016379

PATIENT
  Age: 61 Year
  Sex: Female

DRUGS (1)
  1. GILENYA [Suspect]
     Active Substance: FINGOLIMOD HYDROCHLORIDE
     Indication: RELAPSING-REMITTING MULTIPLE SCLEROSIS
     Dosage: 0.5 MG, QD
     Route: 048
     Dates: start: 20160627

REACTIONS (11)
  - Coma [Unknown]
  - Fall [Unknown]
  - Hot flush [Unknown]
  - Eye contusion [Unknown]
  - Heart rate increased [Unknown]
  - Face injury [Unknown]
  - Loss of consciousness [Unknown]
  - Blood glucose decreased [Unknown]
  - Tremor [Not Recovered/Not Resolved]
  - Malaise [Unknown]
  - Headache [Unknown]

NARRATIVE: CASE EVENT DATE: 20160627
